FAERS Safety Report 23579920 (Version 1)
Quarter: 2024Q1

REPORT INFORMATION
  Report Type: Spontaneous
  Country: US (occurrence: None)
  Receive Date: 20240228
  Receipt Date: 20240228
  Transmission Date: 20240410
  Serious: Yes (Hospitalization)
  Sender: FDA-Public Use
  Company Number: None

PATIENT
  Age: 11 Month
  Sex: Male

DRUGS (2)
  1. PULMOZYME [Suspect]
     Active Substance: DORNASE ALFA
     Indication: Infective pulmonary exacerbation of cystic fibrosis
     Dosage: OTHER QUANTITY : 1 VIAL;?FREQUENCY : DAILY;?OTHER ROUTE : VIA NEBULIZER;?
     Route: 050
  2. PARI LC PLUS [Concomitant]

REACTIONS (2)
  - Hospitalisation [None]
  - Medical procedure [None]

NARRATIVE: CASE EVENT DATE: 20240226
